FAERS Safety Report 13287392 (Version 1)
Quarter: 2017Q1

REPORT INFORMATION
  Report Type: Spontaneous
  Country: US (occurrence: US)
  Receive Date: 20170302
  Receipt Date: 20170302
  Transmission Date: 20170428
  Serious: No
  Sender: FDA-Public Use
  Company Number: US-ELI_LILLY_AND_COMPANY-US201702011598

PATIENT
  Age: 37 Year
  Sex: Female

DRUGS (2)
  1. PROZAC [Suspect]
     Active Substance: FLUOXETINE HYDROCHLORIDE
     Indication: PRODUCT USED FOR UNKNOWN INDICATION
     Dosage: UNK, UNKNOWN
     Route: 065
  2. THIOLA [Interacting]
     Active Substance: TIOPRONIN
     Indication: AMINO ACID METABOLISM DISORDER
     Dosage: 100 MG, TID
     Route: 065
     Dates: start: 201702

REACTIONS (2)
  - Drug interaction [Unknown]
  - Mood swings [Unknown]

NARRATIVE: CASE EVENT DATE: 201702
